FAERS Safety Report 4370487-1 (Version None)
Quarter: 2004Q2

REPORT INFORMATION
  Report Type: 
  Country: None (occurrence: None)
  Receive Date: 20040601
  Receipt Date: 20031117
  Transmission Date: 20050107
  Serious: Yes (Other)
  Sender: FDA-Public Use
  Company Number: IMM024449

PATIENT
  Sex: Female

DRUGS (6)
  1. ENBREL [Suspect]
     Dosage: 25 MG TWICE WEEKLY SC
     Route: 058
  2. METHOTREXATE [Concomitant]
  3. OXYCONTIN [Concomitant]
  4. ROFECOXIB [Concomitant]
  5. LANSOPRAZOLE [Concomitant]
  6. METHOTREXATE [Concomitant]

REACTIONS (1)
  - PARAESTHESIA [None]
